FAERS Safety Report 13644190 (Version 1)
Quarter: 2017Q2

REPORT INFORMATION
  Report Type: Spontaneous
  Country: US (occurrence: US)
  Receive Date: 20170612
  Receipt Date: 20170612
  Transmission Date: 20170830
  Serious: Yes (Other)
  Sender: FDA-Public Use
  Company Number: US-BAYER-2017-104987

PATIENT
  Sex: Male

DRUGS (1)
  1. COPPERTONE SPORT PRO SERIES SPF 15 [Suspect]
     Active Substance: AVOBENZONE\HOMOSALATE\OCTISALATE\OCTOCRYLENE
     Dosage: UNK

REACTIONS (2)
  - Scar [Unknown]
  - Chemical burn [Unknown]
